FAERS Safety Report 6667142-1 (Version None)
Quarter: 2010Q2

REPORT INFORMATION
  Report Type: 
  Country: None (occurrence: None)
  Receive Date: 20100405
  Receipt Date: 20100326
  Transmission Date: 20101027
  Serious: Yes (Other)
  Sender: FDA-Public Use
  Company Number: US-JNJFOC-20100308892

PATIENT
  Age: 38 Year
  Sex: Female

DRUGS (1)
  1. LEVAQUIN [Suspect]
     Indication: PNEUMONIA PRIMARY ATYPICAL
     Route: 048

REACTIONS (4)
  - HYPOAESTHESIA ORAL [None]
  - PARAESTHESIA ORAL [None]
  - URTICARIA [None]
  - WHEEZING [None]
